FAERS Safety Report 15246652 (Version 2)
Quarter: 2018Q4

REPORT INFORMATION
  Report Type: Spontaneous
  Country: US (occurrence: US)
  Receive Date: 20180806
  Receipt Date: 20181029
  Transmission Date: 20190204
  Serious: Yes (Hospitalization, Other)
  Sender: FDA-Public Use
  Company Number: US-009507513-1808USA001913

PATIENT
  Sex: Male

DRUGS (1)
  1. JANUVIA [Suspect]
     Active Substance: SITAGLIPTIN PHOSPHATE
     Dosage: UNK
     Route: 048

REACTIONS (6)
  - Pulmonary fibrosis [Recovering/Resolving]
  - Chronic obstructive pulmonary disease [Recovering/Resolving]
  - Sleep apnoea syndrome [Recovering/Resolving]
  - Cystic fibrosis [Unknown]
  - Respiratory failure [Recovering/Resolving]
  - Overweight [Recovering/Resolving]
